FAERS Safety Report 5322666-4 (Version None)
Quarter: 2007Q2

REPORT INFORMATION
  Report Type: 
  Country: None (occurrence: None)
  Receive Date: 20070507
  Receipt Date: 20070423
  Transmission Date: 20071010
  Serious: Yes (Life-Threatening, Hospitalization)
  Sender: FDA-Public Use
  Company Number: 430028K07USA

PATIENT
  Age: 46 Year
  Sex: Female

DRUGS (11)
  1. NOVANTRONE [Suspect]
     Indication: MULTIPLE SCLEROSIS
     Dosage: SEE IMAGE
     Route: 042
     Dates: start: 20040201, end: 20040201
  2. NOVANTRONE [Suspect]
     Indication: MULTIPLE SCLEROSIS
     Dosage: SEE IMAGE
     Route: 042
     Dates: start: 20060701, end: 20060701
  3. NOVANTRONE [Suspect]
     Indication: MULTIPLE SCLEROSIS
     Dosage: SEE IMAGE
     Route: 042
     Dates: start: 20061011, end: 20061011
  4. REBIF [Suspect]
     Indication: MULTIPLE SCLEROSIS
     Dosage: 44 MCG, 3 IN 1 WEEKS, SUBCUTANEOUS
     Route: 058
     Dates: start: 20051031, end: 20060101
  5. ZOLOFT [Concomitant]
  6. BACLOFEN [Concomitant]
  7. VESICARE [Concomitant]
  8. BACLOFEN PUMP (BACLOFEN) [Concomitant]
  9. PROVIGIL [Concomitant]
  10. CLONAZEPAM [Concomitant]
  11. MULTIVITAMIN [Concomitant]

REACTIONS (5)
  - ATELECTASIS [None]
  - FEBRILE NEUTROPENIA [None]
  - PULMONARY EMBOLISM [None]
  - URINARY TRACT INFECTION [None]
  - VOMITING [None]
